FAERS Safety Report 6043833-0 (Version None)
Quarter: 2009Q1

REPORT INFORMATION
  Report Type: 
  Country: None (occurrence: None)
  Receive Date: 20090120
  Receipt Date: 20090108
  Transmission Date: 20090719
  Serious: Yes (Other)
  Sender: FDA-Public Use
  Company Number: GB-AMGEN-US328147

PATIENT
  Sex: Female
  Weight: 20.1 kg

DRUGS (5)
  1. ENBREL [Suspect]
     Indication: POLYARTHRITIS
     Route: 058
     Dates: start: 20080218
  2. METHOTREXATE [Concomitant]
     Route: 048
     Dates: start: 20070801
  3. IBUPROFEN [Concomitant]
     Dosage: 160 MG EVERY
     Route: 048
     Dates: start: 20070801
  4. PREDNISOLONE [Concomitant]
     Route: 048
     Dates: start: 20081201
  5. PREDNISOLONE [Concomitant]
     Dosage: WEANING REGIME REDUCED BY 5MG, EVERY WEEK.
     Route: 048

REACTIONS (2)
  - CONDITION AGGRAVATED [None]
  - JUVENILE ARTHRITIS [None]
